FAERS Safety Report 6632235-1 (Version None)
Quarter: 2010Q1

REPORT INFORMATION
  Report Type: 
  Country: None (occurrence: None)
  Receive Date: 20100312
  Receipt Date: 20100303
  Transmission Date: 20100710
  Serious: Yes (Death, Other)
  Sender: FDA-Public Use
  Company Number: BR-MILLENNIUM PHARMACEUTICALS, INC.-2010-01562

PATIENT

DRUGS (4)
  1. VELCADE [Suspect]
     Indication: MULTIPLE MYELOMA
  2. DEXAMETHASONE [Suspect]
     Indication: MULTIPLE MYELOMA
     Dosage: UNK
     Dates: start: 20090401
  3. CAELYX [Suspect]
     Indication: MULTIPLE MYELOMA
     Dosage: UNK
     Dates: start: 20090401
  4. EPREX [Suspect]

REACTIONS (5)
  - BONE PAIN [None]
  - DEATH [None]
  - PNEUMONIA [None]
  - PULMONARY FIBROSIS [None]
  - SEPSIS [None]
